FAERS Safety Report 6616688-0 (Version None)
Quarter: 2010Q1

REPORT INFORMATION
  Report Type: 
  Country: None (occurrence: None)
  Receive Date: 20100301
  Receipt Date: 20100210
  Transmission Date: 20100710
  Serious: Yes (Hospitalization)
  Sender: FDA-Public Use
  Company Number: 007305

PATIENT
  Sex: Female

DRUGS (1)
  1. CIMZIA [Suspect]
     Indication: CROHN'S DISEASE
     Dosage: SUBCUTANEOUS
     Route: 058
     Dates: start: 20091101, end: 20100101

REACTIONS (4)
  - CHEST DISCOMFORT [None]
  - DEHYDRATION [None]
  - ELECTROLYTE IMBALANCE [None]
  - INFLUENZA [None]
